FAERS Safety Report 5827949-7 (Version None)
Quarter: 2008Q3

REPORT INFORMATION
  Report Type: 
  Country: None (occurrence: None)
  Receive Date: 20080725
  Receipt Date: 20080717
  Transmission Date: 20090109
  Serious: Yes (Death)
  Sender: FDA-Public Use
  Company Number: 2008BI009738

PATIENT
  Age: 58 Year
  Sex: Male

DRUGS (9)
  1. TYSABRI [Suspect]
     Indication: MULTIPLE SCLEROSIS
     Dosage: 300 MG; QM; IV
     Route: 042
     Dates: start: 20061207, end: 20080318
  2. AVONEX [Concomitant]
  3. EFFEXOR [Concomitant]
  4. THEOPHYLLINE [Concomitant]
  5. LIPITOR [Concomitant]
  6. METHYLPHENIDATE HCL [Concomitant]
  7. BACLOFEN [Concomitant]
  8. ENALAPRIL MALEATE [Concomitant]
  9. ALBUTEROL [Concomitant]

REACTIONS (3)
  - CARDIAC DISORDER [None]
  - PULMONARY EMBOLISM [None]
  - UNEVALUABLE EVENT [None]
